FAERS Safety Report 10253176 (Version 3)
Quarter: 2014Q3

REPORT INFORMATION
  Report Type: Spontaneous
  Country: IT (occurrence: IT)
  Receive Date: 20140623
  Receipt Date: 20140803
  Transmission Date: 20150326
  Serious: Yes (Life-Threatening, Hospitalization, Other)
  Sender: FDA-Public Use
  Company Number: IT-BRISTOL-MYERS SQUIBB COMPANY-21013636

PATIENT
  Age: 73 Year
  Sex: Male

DRUGS (2)
  1. CLEXANE [Suspect]
     Active Substance: ENOXAPARIN SODIUM
     Indication: ATRIAL FIBRILLATION
     Dosage: 6000 IU AXA/0.6ML INJECTION SOLUTION?05APR2014
     Route: 058
     Dates: start: 20140320
  2. COUMADIN [Suspect]
     Active Substance: WARFARIN SODIUM
     Indication: ATRIAL FIBRILLATION
     Dosage: 05APR2014
     Route: 048
     Dates: start: 20140301

REACTIONS (7)
  - Diabetes mellitus inadequate control [Recovering/Resolving]
  - Retroperitoneal haematoma [Unknown]
  - Vertigo [Unknown]
  - Renal failure acute [Recovering/Resolving]
  - Shock [Recovering/Resolving]
  - Fall [Unknown]
  - Presyncope [Unknown]

NARRATIVE: CASE EVENT DATE: 20140405
